FAERS Safety Report 16967225 (Version 1)
Quarter: 2019Q4

REPORT INFORMATION
  Report Type: Report from Study
  Country: HN (occurrence: HN)
  Receive Date: 20191028
  Receipt Date: 20191028
  Transmission Date: 20200122
  Serious: Yes (Other)
  Sender: FDA-Public Use
  Company Number: HN-SA-2019SA294238

PATIENT
  Age: 70 Year
  Sex: Female

DRUGS (1)
  1. HYDROCHLOROTHIAZIDE/IRBESARTAN [Suspect]
     Active Substance: HYDROCHLOROTHIAZIDE\IRBESARTAN
     Indication: HYPERTENSION
     Dosage: 1 DF, QD
     Route: 048

REACTIONS (7)
  - Sensory loss [Recovering/Resolving]
  - Foraminotomy [Recovering/Resolving]
  - Muscle spasms [Recovering/Resolving]
  - Blood pressure increased [Recovering/Resolving]
  - Blood potassium decreased [Recovering/Resolving]
  - Epistaxis [Recovering/Resolving]
  - Vein rupture [Recovering/Resolving]

NARRATIVE: CASE EVENT DATE: 20191017
